FAERS Safety Report 4642449-8 (Version None)
Quarter: 2005Q2

REPORT INFORMATION
  Report Type: 
  Country: None (occurrence: None)
  Receive Date: 20050422
  Receipt Date: 20050412
  Transmission Date: 20051028
  Serious: Yes (Hospitalization)
  Sender: FDA-Public Use
  Company Number: FR-ROCHE-401484

PATIENT
  Age: 46 Year
  Sex: Female

DRUGS (5)
  1. ROCEPHIN [Suspect]
     Route: 065
     Dates: end: 20050309
  2. APRANAX [Suspect]
     Route: 048
     Dates: start: 20050305
  3. CIPROFLOXACIN [Suspect]
     Route: 065
     Dates: end: 20050309
  4. PROFENID [Suspect]
     Route: 030
     Dates: end: 20050309
  5. BI-PROFENID [Suspect]
     Route: 065
     Dates: end: 20050309

REACTIONS (5)
  - ABDOMINAL PAIN UPPER [None]
  - ASTHENIA [None]
  - RENAL FAILURE ACUTE [None]
  - URINARY TRACT INFECTION [None]
  - VOMITING [None]
